FAERS Safety Report 4315343-X (Version None)
Quarter: 2004Q1

REPORT INFORMATION
  Report Type: 
  Country: None (occurrence: None)
  Receive Date: 20040309
  Receipt Date: 20040223
  Transmission Date: 20041129
  Serious: Yes (Hospitalization, Other)
  Sender: FDA-Public Use
  Company Number: US_990319477

PATIENT
  Age: 61 Year
  Sex: Male
  Weight: 114 kg

DRUGS (13)
  1. HUMALOG [Suspect]
     Indication: DIABETES MELLITUS
     Dosage: 10 U/3 DAY
     Dates: start: 19960101
  2. HUMALOG [Suspect]
     Dates: start: 20010101
  3. HUMULIN-HUMAN NPH INSULIN [Suspect]
     Indication: DIABETES MELLITUS
     Dosage: 20 U/2 DAY
     Dates: start: 19981001
  4. HUMULIN R [Suspect]
     Indication: DIABETES MELLITUS
     Dosage: 10 U/2 DAY
     Dates: start: 19990115
  5. GLUCOPHAGE [Concomitant]
  6. ALLEGRA [Concomitant]
  7. LEVOTHYROXINE SODIUM [Concomitant]
  8. TOPROL-XL [Concomitant]
  9. TRICOR [Concomitant]
  10. AMITRIPTYLINE HCL [Concomitant]
  11. LUVOX [Concomitant]
  12. ACETYLSALICYLIC ACID SRT [Concomitant]
  13. MULTI-VITAMIN [Concomitant]

REACTIONS (11)
  - BLOOD GLUCOSE DECREASED [None]
  - BLOOD GLUCOSE INCREASED [None]
  - DIARRHOEA [None]
  - HUNGER [None]
  - INADEQUATE DIET [None]
  - INSOMNIA [None]
  - LARGE INTESTINE PERFORATION [None]
  - LUNG NEOPLASM MALIGNANT [None]
  - NIGHT SWEATS [None]
  - PHARMACEUTICAL PRODUCT COMPLAINT [None]
  - WEIGHT DECREASED [None]
